FAERS Safety Report 12763280 (Version 2)
Quarter: 2016Q4

REPORT INFORMATION
  Report Type: Spontaneous
  Country: US (occurrence: US)
  Receive Date: 20160920
  Receipt Date: 20161011
  Transmission Date: 20170207
  Serious: Yes (Hospitalization, Other)
  Sender: FDA-Public Use
  Company Number: US-SAOL THERAPEUTICS-2016SAO00659

PATIENT
  Age: 61 Year
  Sex: Female
  Weight: 74.83 kg

DRUGS (7)
  1. INTRAVENOUS IMMUNOGLOBULIN [Suspect]
     Active Substance: HUMAN IMMUNOGLOBULIN G
  2. TOPAMAX [Suspect]
     Active Substance: TOPIRAMATE
  3. REBIF [Suspect]
     Active Substance: INTERFERON BETA-1A
     Indication: MUSCLE SPASTICITY
  4. ^STEROIDS^ [Suspect]
     Active Substance: UNSPECIFIED INGREDIENT
  5. LEXAPRO [Suspect]
     Active Substance: ESCITALOPRAM OXALATE
  6. LIORESAL [Suspect]
     Active Substance: BACLOFEN
     Indication: MUSCLE SPASTICITY
     Dosage: 101.78 ?G, \DAY
     Route: 037
     Dates: start: 20130114
  7. LIORESAL [Suspect]
     Active Substance: BACLOFEN
     Dosage: UNK

REACTIONS (18)
  - Urinary tract infection [Unknown]
  - Abasia [Unknown]
  - Disturbance in attention [Unknown]
  - Ulcer haemorrhage [Unknown]
  - Substance-induced psychotic disorder [Unknown]
  - Withdrawal syndrome [Unknown]
  - Dysarthria [Unknown]
  - Migraine [Unknown]
  - Seizure [Unknown]
  - Altered state of consciousness [Unknown]
  - Sepsis [Unknown]
  - Memory impairment [Unknown]
  - Aphasia [Unknown]
  - Anxiety [Unknown]
  - Muscle tightness [Recovering/Resolving]
  - Malaise [Unknown]
  - Multiple sclerosis relapse [Unknown]
  - Confusional state [Unknown]

NARRATIVE: CASE EVENT DATE: 201412
